FAERS Safety Report 14601370 (Version 1)
Quarter: 2018Q1

REPORT INFORMATION
  Report Type: Report from Study
  Country: None (occurrence: AT)
  Receive Date: 20180305
  Receipt Date: 20180305
  Transmission Date: 20180509
  Serious: Yes (Death)
  Sender: FDA-Public Use
  Company Number: AT-ABBVIE-18P-009-2273306-00

PATIENT
  Age: 68 Year
  Sex: Female

DRUGS (2)
  1. VENCLYXTO [Suspect]
     Active Substance: VENETOCLAX
     Indication: MYELODYSPLASTIC SYNDROME
  2. VENCLYXTO [Suspect]
     Active Substance: VENETOCLAX
     Indication: ACUTE MYELOID LEUKAEMIA
     Dosage: FINAL DOSE: 400MG PER DAY
     Route: 048
     Dates: start: 20180202, end: 20180205

REACTIONS (1)
  - Death [Fatal]

NARRATIVE: CASE EVENT DATE: 20180205
